FAERS Safety Report 8257597-3 (Version None)
Quarter: 2012Q2

REPORT INFORMATION
  Report Type: 
  Country: None (occurrence: None)
  Receive Date: 20120403
  Receipt Date: 20120326
  Transmission Date: 20120825
  Serious: No
  Sender: FDA-Public Use
  Company Number: US-B.I. PHARMACEUTICALS,INC./RIDGEFIELD-2012-BP-04624BP

PATIENT
  Sex: Female

DRUGS (5)
  1. ALBUTEROL [Concomitant]
     Indication: ASTHMA
     Route: 048
  2. BROVANA [Concomitant]
     Indication: ASTHMA
     Route: 048
  3. SPIRIVA [Suspect]
     Indication: CHRONIC OBSTRUCTIVE PULMONARY DISEASE
     Dosage: 18 MCG
     Route: 055
     Dates: start: 20120201, end: 20120201
  4. BUDESONIDE [Concomitant]
     Indication: ASTHMA
     Route: 048
  5. ALBUTEROL [Concomitant]
     Route: 055

REACTIONS (2)
  - CHEST DISCOMFORT [None]
  - DYSPNOEA [None]
